FAERS Safety Report 5995052-1 (Version None)
Quarter: 2008Q4

REPORT INFORMATION
  Report Type: 
  Country: None (occurrence: None)
  Receive Date: 20081212
  Receipt Date: 20080923
  Transmission Date: 20090506
  Serious: No
  Sender: FDA-Public Use
  Company Number: US-ABBOTT-08P-163-0477892-00

PATIENT
  Sex: Female

DRUGS (15)
  1. HUMIRA [Suspect]
     Indication: CROHN'S DISEASE
     Route: 058
     Dates: start: 20080701, end: 20080701
  2. HUMIRA [Suspect]
     Route: 058
  3. HUMIRA [Suspect]
     Route: 058
  4. TRAZODONE HCL [Concomitant]
     Indication: DRUG USE FOR UNKNOWN INDICATION
  5. TOPIRAMATE [Concomitant]
     Indication: DRUG USE FOR UNKNOWN INDICATION
     Route: 048
  6. PREDNISONE TAB [Concomitant]
     Indication: DRUG USE FOR UNKNOWN INDICATION
  7. MONTELUKAST SODIUM [Concomitant]
     Indication: DRUG USE FOR UNKNOWN INDICATION
  8. MESALAMINE [Concomitant]
     Indication: DRUG USE FOR UNKNOWN INDICATION
     Dosage: 2 TABS THREE TIMES A DAY
  9. ANUSOL [Concomitant]
     Indication: DRUG USE FOR UNKNOWN INDICATION
  10. SERETIDE [Concomitant]
     Indication: DRUG USE FOR UNKNOWN INDICATION
  11. ESOMEPRAZOLE MAGNESIUM [Concomitant]
     Indication: DRUG USE FOR UNKNOWN INDICATION
  12. ESCITALOPRAM OXALATE [Concomitant]
     Indication: DRUG USE FOR UNKNOWN INDICATION
  13. BUPROPION HCL [Concomitant]
     Indication: DRUG USE FOR UNKNOWN INDICATION
  14. ALPRAZOLAM [Concomitant]
     Indication: DRUG USE FOR UNKNOWN INDICATION
  15. ALBUTERAL INHALER [Concomitant]
     Indication: DRUG USE FOR UNKNOWN INDICATION

REACTIONS (1)
  - ALOPECIA [None]
